FAERS Safety Report 18059379 (Version 2)
Quarter: 2020Q3

REPORT INFORMATION
  Report Type: Spontaneous
  Country: IN (occurrence: IN)
  Receive Date: 20200723
  Receipt Date: 20200811
  Transmission Date: 20201103
  Serious: Yes (Other)
  Sender: FDA-Public Use
  Company Number: IN-STRIDES ARCOLAB LIMITED-2020SP008326

PATIENT
  Age: 62 Year
  Sex: Male

DRUGS (1)
  1. AMLODIPINE [Suspect]
     Active Substance: AMLODIPINE BESYLATE
     Indication: HYPERTENSION
     Dosage: UNK (TABLET)
     Route: 065

REACTIONS (4)
  - Hypersensitivity vasculitis [Recovered/Resolved]
  - Skin ulcer [Recovered/Resolved]
  - Ecchymosis [Recovered/Resolved]
  - Purpura [Recovered/Resolved]
